FAERS Safety Report 25711421 (Version 1)
Quarter: 2025Q3

REPORT INFORMATION
  Report Type: Spontaneous
  Country: US (occurrence: US)
  Receive Date: 20250821
  Receipt Date: 20250821
  Transmission Date: 20251021
  Serious: Yes (Hospitalization, Other)
  Sender: TEVA
  Company Number: US-TEVA-VS-3362736

PATIENT
  Age: 36 Year
  Sex: Male

DRUGS (8)
  1. CAPECITABINE [Suspect]
     Active Substance: CAPECITABINE
     Indication: Skin squamous cell carcinoma metastatic
     Route: 065
  2. TACROLIMUS [Concomitant]
     Active Substance: TACROLIMUS
     Indication: Prophylaxis
     Route: 065
     Dates: start: 202202, end: 202203
  3. CARBOPLATIN [Suspect]
     Active Substance: CARBOPLATIN
     Indication: Skin squamous cell carcinoma metastatic
     Dosage: AUC 2
     Route: 065
     Dates: start: 202206
  4. CETUXIMAB [Suspect]
     Active Substance: CETUXIMAB
     Indication: Skin squamous cell carcinoma metastatic
     Route: 065
     Dates: start: 202010
  5. PACLITAXEL [Suspect]
     Active Substance: PACLITAXEL
     Indication: Skin squamous cell carcinoma metastatic
     Route: 065
     Dates: start: 202206
  6. PREDNISONE [Concomitant]
     Active Substance: PREDNISONE
     Indication: Prophylaxis
     Route: 065
     Dates: start: 202202, end: 202203
  7. CEMIPLIMAB [Suspect]
     Active Substance: CEMIPLIMAB
     Indication: Skin squamous cell carcinoma metastatic
     Route: 065
     Dates: start: 202202, end: 202203
  8. CEMIPLIMAB [Suspect]
     Active Substance: CEMIPLIMAB
     Indication: Skin squamous cell carcinoma metastatic
     Route: 042
     Dates: start: 202206

REACTIONS (8)
  - Pneumonitis [Unknown]
  - Decreased appetite [Unknown]
  - Respiratory failure [Unknown]
  - Therapy non-responder [Unknown]
  - Renal failure [Unknown]
  - Fatigue [Unknown]
  - Nausea [Unknown]
  - Febrile neutropenia [Unknown]

NARRATIVE: CASE EVENT DATE: 20220101
